FAERS Safety Report 4622665-1 (Version None)
Quarter: 2005Q1

REPORT INFORMATION
  Report Type: 
  Country: None (occurrence: None)
  Receive Date: 20050330
  Receipt Date: 20041212
  Transmission Date: 20050727
  Serious: No
  Sender: FDA-Public Use
  Company Number: US-BRISTOL-MYERS SQUIBB COMPANY-12793618

PATIENT

DRUGS (3)
  1. REYATAZ [Suspect]
  2. VIREAD [Concomitant]
  3. EPIVIR [Concomitant]

REACTIONS (1)
  - ALOPECIA [None]
